FAERS Safety Report 7868165-7 (Version None)
Quarter: 2011Q4

REPORT INFORMATION
  Report Type: 
  Country: None (occurrence: None)
  Receive Date: 20111028
  Receipt Date: 20111018
  Transmission Date: 20120403
  Serious: Yes (Other)
  Sender: FDA-Public Use
  Company Number: US-BAYER-2011-003033

PATIENT
  Age: 18 Year
  Sex: Female
  Weight: 61.224 kg

DRUGS (11)
  1. PROTONIX [Concomitant]
     Dosage: UNK
     Route: 048
     Dates: start: 20080508
  2. CARAFATE [Concomitant]
     Dosage: 1 G, QID
     Route: 048
     Dates: start: 20080508
  3. DROSPIRENONE AND ETHINYL ESTRADIOL [Suspect]
     Indication: PREMENSTRUAL SYNDROME
     Dosage: UNK
     Dates: start: 20080801, end: 20100408
  4. DROSPIRENONE AND ETHINYL ESTRADIOL [Suspect]
     Indication: MENSTRUAL CYCLE MANAGEMENT
  5. DICYCLOMINE [Concomitant]
     Dosage: UNK
     Route: 048
     Dates: start: 20080611
  6. TYLENOL W/ CODEINE NO. 3 [Concomitant]
     Route: 048
  7. DILAUDID [Concomitant]
     Indication: PAIN
     Dosage: UNK
     Route: 048
     Dates: start: 20080508
  8. PRILOSEC [Concomitant]
     Dosage: UNK
     Route: 048
     Dates: start: 20080504
  9. YAZ [Suspect]
     Indication: PREMENSTRUAL SYNDROME
     Dosage: UNK
     Dates: start: 20071101, end: 20080801
  10. YAZ [Suspect]
     Indication: MENSTRUAL CYCLE MANAGEMENT
  11. ELAVIL [Concomitant]
     Dosage: 10 MG, UNK
     Route: 048
     Dates: start: 20080508

REACTIONS (6)
  - CHOLECYSTITIS CHRONIC [None]
  - GALLBLADDER INJURY [None]
  - VOMITING [None]
  - PAIN [None]
  - NAUSEA [None]
  - ABDOMINAL PAIN UPPER [None]
